FAERS Safety Report 15809136 (Version 10)
Quarter: 2020Q1

REPORT INFORMATION
  Report Type: Report from Study
  Country: US (occurrence: US)
  Receive Date: 20190110
  Receipt Date: 20200224
  Transmission Date: 20200409
  Serious: Yes (Hospitalization, Other)
  Sender: FDA-Public Use
  Company Number: US-ACTELION-A-NJ2019-184756

PATIENT
  Sex: Female
  Weight: 81.18 kg

DRUGS (4)
  1. TADALAFIL. [Concomitant]
     Active Substance: TADALAFIL
  2. UPTRAVI [Suspect]
     Active Substance: SELEXIPAG
     Indication: PULMONARY ARTERIAL HYPERTENSION
     Dosage: 1000 MCG, BID
     Route: 048
  3. UPTRAVI [Suspect]
     Active Substance: SELEXIPAG
     Dosage: 200 MCG, BID
     Route: 048
  4. WARFARIN [Concomitant]
     Active Substance: WARFARIN

REACTIONS (25)
  - Arteriovenous fistula site haemorrhage [Unknown]
  - Blood pressure increased [Unknown]
  - Asthenia [Unknown]
  - Contusion [Unknown]
  - Cardiac disorder [Unknown]
  - Renal disorder [Unknown]
  - Rectal haemorrhage [Unknown]
  - Hospitalisation [Unknown]
  - Rash pruritic [Unknown]
  - Heart rate increased [Unknown]
  - End stage renal disease [Unknown]
  - Dizziness [Unknown]
  - Fall [Unknown]
  - Pruritus [Unknown]
  - Wrong dose [Unknown]
  - Dyspnoea [Unknown]
  - Blood glucose increased [Unknown]
  - Muscular weakness [Unknown]
  - Syncope [Unknown]
  - Fatigue [Unknown]
  - Memory impairment [Not Recovered/Not Resolved]
  - Lung disorder [Unknown]
  - Dialysis [Unknown]
  - Feeling abnormal [Unknown]
  - Hypotension [Unknown]
